FAERS Safety Report 23398843 (Version 1)
Quarter: 2024Q1

REPORT INFORMATION
  Report Type: Spontaneous
  Country: US (occurrence: US)
  Receive Date: 20240112
  Receipt Date: 20240112
  Transmission Date: 20240410
  Serious: Yes (Hospitalization)
  Sender: FDA-Public Use
  Company Number: US-FMCRTG-FMC-2401-000019

PATIENT
  Age: 41 Year
  Sex: Female

DRUGS (12)
  1. DELFLEX [Suspect]
     Active Substance: CALCIUM CHLORIDE\DEXTROSE\MAGNESIUM CHLORIDE\SODIUM CHLORIDE\SODIUM LACTATE
     Indication: End stage renal disease
     Route: 033
  2. ALLOPURINOL [Concomitant]
     Active Substance: ALLOPURINOL
     Dosage: 100MG TABLET, 1 TABLET BY MOUTH ONCE A DAY.
  3. ASPIRIN [Concomitant]
     Active Substance: ASPIRIN
     Dosage: 81 MG CHEWABLE TABLET, 1 TABLET BY MOUTH ONCE A DAY.
  4. CARVEDILOL [Concomitant]
     Active Substance: CARVEDILOL
     Dosage: 25 MG TABLET, 1 TABLET BY MOUTH TWICE A DAY.
  5. ATORVASTATIN [Concomitant]
     Active Substance: ATORVASTATIN
     Dosage: 80 MG TAB, 1 TABLET BY MOUTH ONCE A DAY.
  6. FARXIGA [Concomitant]
     Active Substance: DAPAGLIFLOZIN PROPANEDIOL
     Dosage: 10 MG TAB, 1 TABLET BY MOUTH ONCE A DAY.
  7. FUROSEMIDE [Concomitant]
     Active Substance: FUROSEMIDE
     Dosage: 40 MG TAB 1 TABLET BY MOUTH TWICE A DAY.
  8. HYDRALAZINE [Concomitant]
     Active Substance: HYDRALAZINE HYDROCHLORIDE
     Dosage: 50 MG TAB, 1 TABLET BY MOUTH THREE TIMES A DAY.
  9. METOLAZONE [Concomitant]
     Active Substance: METOLAZONE
     Dosage: 5 MG TAB 1 TABLET BY MOUTH ONCE A DAY.
  10. SEVELAMER [Concomitant]
     Active Substance: SEVELAMER
     Dosage: 800 MG TAB TAKE 2 TABLET BY MOUTH WITH MEALS.
  11. SODIUM BICARBONATE [Concomitant]
     Active Substance: SODIUM BICARBONATE
     Dosage: 325 MG TAB 2 TABLET BY MOUTH TWICE A DAY.
  12. TRAMADOL [Concomitant]
     Active Substance: TRAMADOL\TRAMADOL HYDROCHLORIDE
     Dosage: 50 MG TAB 1 TABLET BY MOUTH EVERY 4 HOURS AS NEEDED FOR PAIN.

REACTIONS (1)
  - Peritoneal dialysate leakage [Recovered/Resolved]

NARRATIVE: CASE EVENT DATE: 20231219
